FAERS Safety Report 8177616-2 (Version None)
Quarter: 2012Q1

REPORT INFORMATION
  Report Type: 
  Country: None (occurrence: None)
  Receive Date: 20120301
  Receipt Date: 20120222
  Transmission Date: 20120608
  Serious: Yes (Disabling, Other)
  Sender: FDA-Public Use
  Company Number: PHEH2011US011923

PATIENT
  Sex: Male
  Weight: 165 kg

DRUGS (5)
  1. LOVAZA [Concomitant]
     Dosage: 3 DF, QD
     Route: 048
     Dates: start: 20110121
  2. CELEXA [Concomitant]
     Dosage: 1 DF, QD
     Route: 048
     Dates: start: 20111230
  3. PROVIGIL [Concomitant]
     Dosage: 1 DF, QD
     Route: 048
     Dates: start: 20110121
  4. GILENYA [Suspect]
     Indication: RELAPSING-REMITTING MULTIPLE SCLEROSIS
     Dosage: 0.5 MG, QD
     Route: 048
     Dates: start: 20110301
  5. VITAMIN D [Concomitant]
     Dosage: 2 DF, QD
     Route: 048
     Dates: start: 20100401

REACTIONS (11)
  - URINARY INCONTINENCE [None]
  - CATARACT NUCLEAR [None]
  - GAIT DISTURBANCE [None]
  - SEBORRHOEIC KERATOSIS [None]
  - CHEST DISCOMFORT [None]
  - SKIN LESION [None]
  - VISUAL IMPAIRMENT [None]
  - FEELING ABNORMAL [None]
  - MUSCLE SPASMS [None]
  - MUSCULOSKELETAL CHEST PAIN [None]
  - VISION BLURRED [None]
